FAERS Safety Report 7887891-7 (Version None)
Quarter: 2011Q4

REPORT INFORMATION
  Report Type: 
  Country: None (occurrence: None)
  Receive Date: 20111103
  Receipt Date: 20111103
  Transmission Date: 20120403
  Serious: Yes (Disabling)
  Sender: FDA-Public Use
  Company Number: None

PATIENT
  Age: 8 Year
  Sex: Female

DRUGS (2)
  1. ADDERALL 5 [Suspect]
     Indication: ATTENTION DEFICIT/HYPERACTIVITY DISORDER
     Dates: start: 19990801, end: 20070801
  2. VYVANSE [Concomitant]
     Indication: ATTENTION DEFICIT/HYPERACTIVITY DISORDER
     Dates: start: 20070801, end: 20101101

REACTIONS (14)
  - SCAR [None]
  - TIC [None]
  - EMOTIONAL DISORDER [None]
  - MENTAL DISORDER [None]
  - PAIN [None]
  - TACHYCARDIA [None]
  - SKIN ULCER [None]
  - DERMATILLOMANIA [None]
  - BLOOD PRESSURE ABNORMAL [None]
  - HALLUCINATION, VISUAL [None]
  - INAPPROPRIATE SCHEDULE OF DRUG ADMINISTRATION [None]
  - FEAR [None]
  - PANIC DISORDER [None]
  - GENERALISED ANXIETY DISORDER [None]
